FAERS Safety Report 4639127-8 (Version None)
Quarter: 2005Q2

REPORT INFORMATION
  Report Type: 
  Country: None (occurrence: None)
  Receive Date: 20050419
  Receipt Date: 20050404
  Transmission Date: 20051028
  Serious: Yes (Other)
  Sender: FDA-Public Use
  Company Number: US-GLAXOSMITHKLINE-A0552554A

PATIENT
  Age: 84 Year
  Sex: Female
  Weight: 46 kg

DRUGS (9)
  1. CITRUCEL REGULAR SUSPENSION [Suspect]
     Indication: GASTROINTESTINAL DISORDER
     Route: 050
     Dates: start: 20040601, end: 20050401
  2. GABAPENTIN [Suspect]
     Route: 050
     Dates: start: 20041201, end: 20050110
  3. ARICEPT [Concomitant]
  4. PREMARIN [Concomitant]
  5. ACETAMINOPHEN [Concomitant]
  6. NASACORT [Concomitant]
  7. ZALEPLON [Concomitant]
  8. BEXTRA [Concomitant]
     Dates: end: 20040101
  9. NEURONTIN [Concomitant]
     Indication: SLEEP DISORDER
     Dates: end: 20041201

REACTIONS (6)
  - DECUBITUS ULCER [None]
  - DIARRHOEA [None]
  - HYPERHIDROSIS [None]
  - PNEUMONIA ASPIRATION [None]
  - PYREXIA [None]
  - VOMITING [None]
